FAERS Safety Report 17096555 (Version 1)
Quarter: 2019Q4

REPORT INFORMATION
  Report Type: Report from Study
  Country: ES (occurrence: ES)
  Receive Date: 20191202
  Receipt Date: 20191202
  Transmission Date: 20200122
  Serious: Yes (Hospitalization)
  Sender: FDA-Public Use
  Company Number: ES-TEVA-2019-ES-1144644

PATIENT
  Age: 69 Year
  Sex: Female

DRUGS (2)
  1. IMATINIB (2833A) [Suspect]
     Active Substance: IMATINIB MESYLATE
     Route: 065
     Dates: start: 201604, end: 201611
  2. NILOTINIB (8218A) [Suspect]
     Active Substance: NILOTINIB
     Dates: start: 2016

REACTIONS (1)
  - Pulmonary toxicity [Recovering/Resolving]

NARRATIVE: CASE EVENT DATE: 201611
